FAERS Safety Report 6248206-3 (Version None)
Quarter: 2009Q2

REPORT INFORMATION
  Report Type: 
  Country: None (occurrence: None)
  Receive Date: 20090629
  Receipt Date: 20070702
  Transmission Date: 20091009
  Serious: Yes (Other)
  Sender: FDA-Public Use
  Company Number: US-ASTRAZENECA-2006UW11533

PATIENT
  Age: 22121 Day
  Sex: Male
  Weight: 74.4 kg

DRUGS (17)
  1. SEROQUEL [Suspect]
     Indication: SCHIZOPHRENIA
     Route: 048
     Dates: start: 19970101
  2. SEROQUEL [Suspect]
     Route: 048
     Dates: start: 20010718
  3. SEROQUEL [Suspect]
     Dosage: 300 - 800 MG
     Route: 048
     Dates: start: 20010718
  4. ZYPREXA [Suspect]
     Dosage: 5 MG - 10 MG
     Dates: start: 19970830, end: 20010718
  5. GLIPIZIDE [Concomitant]
     Dates: start: 19970802
  6. DEPAKOTE [Concomitant]
     Dates: start: 19970101
  7. ATIVAN [Concomitant]
     Indication: AGITATION
     Dosage: AS REQUIRED, 2 - 10 MG DAILY
     Dates: start: 19970101
  8. ATIVAN [Concomitant]
     Indication: ANXIETY
     Dosage: AS REQUIRED, 2 - 10 MG DAILY
     Dates: start: 19970101
  9. ATIVAN [Concomitant]
     Dates: start: 19970101
  10. ATIVAN [Concomitant]
     Dates: start: 19970101
  11. AMBIEN [Concomitant]
     Indication: INSOMNIA
     Dosage: 10 MG AT NIGHT AS NEEDED
     Route: 048
     Dates: start: 20010718
  12. HALDOL [Concomitant]
     Indication: AGITATION
     Dosage: AS REQUIRED
     Dates: start: 20010718
  13. HALDOL [Concomitant]
     Indication: ANXIETY
     Dosage: AS REQUIRED
     Dates: start: 20010718
  14. ASPIRIN [Concomitant]
     Route: 048
     Dates: start: 20060705
  15. PLAVIX [Concomitant]
     Route: 048
     Dates: start: 20060705
  16. TYLENOL (CAPLET) [Concomitant]
     Dosage: AS REQUIRED
     Dates: start: 20060705
  17. HUMALOG [Concomitant]
     Dosage: 75 / 25 14 UNITS TWO TIMES A DAY
     Dates: start: 20060705

REACTIONS (5)
  - DIABETES MELLITUS [None]
  - DIABETES MELLITUS INADEQUATE CONTROL [None]
  - DIABETIC NEUROPATHY [None]
  - NEUROPATHY PERIPHERAL [None]
  - TYPE 1 DIABETES MELLITUS [None]
